FAERS Safety Report 20953162 (Version 1)
Quarter: 2022Q2

REPORT INFORMATION
  Report Type: Spontaneous
  Country: AR (occurrence: AR)
  Receive Date: 20220613
  Receipt Date: 20220613
  Transmission Date: 20220721
  Serious: Yes (Other)
  Sender: FDA-Public Use
  Company Number: AR-NOVARTISPH-NVSC2022AR134813

PATIENT
  Sex: Female

DRUGS (4)
  1. SANDOSTATIN LAR DEPOT [Suspect]
     Active Substance: OCTREOTIDE ACETATE
     Indication: Colon cancer
     Dosage: 30 MG
     Route: 065
  2. SANDOSTATIN LAR DEPOT [Suspect]
     Active Substance: OCTREOTIDE ACETATE
     Dosage: 30 MG, QMO
     Route: 030
     Dates: start: 2018
  3. SANDOSTATIN LAR DEPOT [Suspect]
     Active Substance: OCTREOTIDE ACETATE
     Dosage: 30 MG, QMO
     Route: 030
  4. LEVOTHYROXINE [Concomitant]
     Active Substance: LEVOTHYROXINE
     Indication: Hypothyroidism
     Dosage: UNK
     Route: 065
     Dates: start: 2013

REACTIONS (10)
  - Metastases to liver [Unknown]
  - Headache [Unknown]
  - Hepatic pain [Recovered/Resolved]
  - Liver disorder [Unknown]
  - Gastrointestinal inflammation [Recovered/Resolved]
  - Abdominal distension [Unknown]
  - Asthenia [Unknown]
  - Somnolence [Unknown]
  - Mouth injury [Unknown]
  - Product use in unapproved indication [Unknown]
